FAERS Safety Report 6318226-9 (Version None)
Quarter: 2009Q3

REPORT INFORMATION
  Report Type: 
  Country: None (occurrence: None)
  Receive Date: 20090820
  Receipt Date: 20090820
  Transmission Date: 20100115
  Serious: Yes (Hospitalization)
  Sender: FDA-Public Use
  Company Number: None

PATIENT
  Sex: Male
  Weight: 69.4 kg

DRUGS (2)
  1. AZACITIDINE 75 MG /M2 QD S/C [Suspect]
     Indication: ACUTE MYELOID LEUKAEMIA
     Dosage: 75MG/M2 QD S/C
     Route: 058
     Dates: start: 20090624, end: 20090630
  2. LENALIDOMIDE 5MG [Suspect]
     Dosage: 75MG/M2 QD S/C
     Route: 058
     Dates: start: 20090724, end: 20090730

REACTIONS (1)
  - BACK PAIN [None]
